FAERS Safety Report 9430676 (Version 1)
Quarter: 2013Q3

REPORT INFORMATION
  Report Type: Report from Study
  Country: US (occurrence: US)
  Receive Date: 20130730
  Receipt Date: 20130730
  Transmission Date: 20140515
  Serious: No
  Sender: FDA-Public Use
  Company Number: US-ABBOTT-13P-163-1099953-00

PATIENT
  Age: 68 Year
  Sex: Male
  Weight: 145.28 kg

DRUGS (12)
  1. NIASPAN (COATED) [Suspect]
     Indication: CARDIAC DISORDER
  2. NIASPAN (COATED) [Suspect]
     Dates: end: 20130602
  3. NIASPAN (COATED) [Suspect]
     Dates: start: 20130603
  4. IRON [Concomitant]
     Indication: PRODUCT USED FOR UNKNOWN INDICATION
  5. STOOL SOFTENER [Concomitant]
     Indication: PRODUCT USED FOR UNKNOWN INDICATION
  6. TORSEMIDE [Concomitant]
     Indication: PRODUCT USED FOR UNKNOWN INDICATION
  7. LEVOTHYROXINE [Concomitant]
     Indication: PRODUCT USED FOR UNKNOWN INDICATION
  8. CEFALEXIN [Concomitant]
     Indication: PRODUCT USED FOR UNKNOWN INDICATION
  9. WARFARIN [Concomitant]
     Indication: PRODUCT USED FOR UNKNOWN INDICATION
     Dosage: MWF
  10. WARFARIN [Concomitant]
     Dosage: SAT, SUN, TUE THRU
  11. CRESTOR [Concomitant]
     Indication: PRODUCT USED FOR UNKNOWN INDICATION
  12. CARVEDILOL [Concomitant]
     Indication: PRODUCT USED FOR UNKNOWN INDICATION

REACTIONS (4)
  - Generalised erythema [Recovering/Resolving]
  - Pain [Recovering/Resolving]
  - Skin burning sensation [Recovering/Resolving]
  - Pain [Recovered/Resolved]
